FAERS Safety Report 5574635-7 (Version None)
Quarter: 2007Q4

REPORT INFORMATION
  Report Type: 
  Country: None (occurrence: None)
  Receive Date: 20071227
  Receipt Date: 20071217
  Transmission Date: 20080405
  Serious: Yes (Other)
  Sender: FDA-Public Use
  Company Number: FR-ROCHE-537271

PATIENT
  Age: 50 Year
  Sex: Male

DRUGS (1)
  1. TICLID [Suspect]
     Indication: ANGIOPLASTY
     Route: 048
     Dates: start: 20010101

REACTIONS (2)
  - APHTHOUS STOMATITIS [None]
  - NEUTROPENIA [None]
